FAERS Safety Report 4315621-4 (Version None)
Quarter: 2004Q1

REPORT INFORMATION
  Report Type: 
  Country: None (occurrence: None)
  Receive Date: 20040311
  Receipt Date: 20040310
  Transmission Date: 20041129
  Serious: Yes (Other)
  Sender: FDA-Public Use
  Company Number: US-GLAXOSMITHKLINE-A0502161A

PATIENT
  Age: 88 Year
  Sex: Male

DRUGS (10)
  1. COREG [Suspect]
     Dosage: 25MG PER DAY
     Route: 048
     Dates: start: 20040101
  2. NORVASC [Concomitant]
  3. FERROUS SULFATE TAB [Concomitant]
  4. DIGOXIN [Concomitant]
  5. FUROSEMIDE [Concomitant]
  6. K-DUR 10 [Concomitant]
  7. FLOMAX [Concomitant]
  8. ASPIRIN [Concomitant]
  9. MULTI-VITAMIN [Concomitant]
  10. ZOCOR [Concomitant]

REACTIONS (7)
  - ANAEMIA [None]
  - ANOREXIA [None]
  - FATIGUE [None]
  - HYPOVENTILATION [None]
  - INSOMNIA [None]
  - LISTLESS [None]
  - PRODUCTIVE COUGH [None]
